FAERS Safety Report 10169370 (Version 1)
Quarter: 2014Q2

REPORT INFORMATION
  Report Type: Spontaneous
  Country: US (occurrence: CH)
  Receive Date: 20140513
  Receipt Date: 20140513
  Transmission Date: 20141212
  Serious: Yes (Other)
  Sender: FDA-Public Use
  Company Number: CH-FRI-1000067221

PATIENT
  Age: 45 Year
  Sex: Female

DRUGS (7)
  1. ASENAPINE [Suspect]
     Indication: MANIA
     Dosage: 10 MG
     Route: 060
     Dates: start: 20140220, end: 20140221
  2. ASENAPINE [Suspect]
     Dosage: 20 MG
     Route: 060
     Dates: start: 20140222, end: 20140307
  3. ELTROXIN [Concomitant]
     Dosage: 50 UG
  4. TEMESTA [Concomitant]
     Dosage: 5 MG
  5. MIFLONIDE [Concomitant]
     Dates: start: 20140303
  6. APLEXIL [Concomitant]
     Dates: start: 20140303
  7. FUCIDINE [Concomitant]
     Dates: start: 20140305

REACTIONS (18)
  - Asthma [Recovering/Resolving]
  - Cough [Recovering/Resolving]
  - Dysphonia [Recovered/Resolved]
  - Peripheral coldness [Recovered/Resolved]
  - Visual impairment [Recovered/Resolved]
  - Intention tremor [Recovered/Resolved]
  - Vertigo [Unknown]
  - Catarrh [Unknown]
  - Skin infection [Recovering/Resolving]
  - Blood creatinine increased [Recovered/Resolved]
  - Tachycardia [Recovered/Resolved]
  - Hypertension [Not Recovered/Not Resolved]
  - Headache [Recovered/Resolved]
  - Hypersensitivity [Recovering/Resolving]
  - Angioedema [Recovered/Resolved]
  - Fatigue [Unknown]
  - Dysgeusia [Recovered/Resolved]
  - Glossodynia [Recovered/Resolved]
